FAERS Safety Report 6299511-6 (Version None)
Quarter: 2009Q3

REPORT INFORMATION
  Report Type: 
  Country: None (occurrence: None)
  Receive Date: 20090806
  Receipt Date: 20090714
  Transmission Date: 20100115
  Serious: Yes (Disabling)
  Sender: FDA-Public Use
  Company Number: US-ASTRAZENECA-2009SE06354

PATIENT
  Sex: Male

DRUGS (5)
  1. SENSORCAINE [Suspect]
     Indication: MUSCULOSKELETAL PAIN
     Route: 014
     Dates: start: 20040702
  2. XYLOCAINE [Suspect]
     Indication: MUSCULOSKELETAL PAIN
     Route: 014
     Dates: start: 20040309
  3. I-FLOW PAIN PUMP [Suspect]
     Indication: MUSCULOSKELETAL PAIN
     Dates: start: 20040309
  4. I-FLOW PAIN PUMP [Suspect]
     Dates: start: 20040702
  5. I-FLOW PAIN PUMP [Suspect]
     Dates: start: 20050118

REACTIONS (2)
  - CARTILAGE INJURY [None]
  - MUSCULOSKELETAL PAIN [None]
